FAERS Safety Report 4284018-8 (Version None)
Quarter: 2004Q1

REPORT INFORMATION
  Report Type: 
  Country: None (occurrence: None)
  Receive Date: 20040203
  Receipt Date: 20040126
  Transmission Date: 20041129
  Serious: Yes (Death, Hospitalization, Other)
  Sender: FDA-Public Use
  Company Number: PHBS2004AT01378

PATIENT
  Age: 62 Year
  Sex: Male

DRUGS (3)
  1. CYCLOSPORINE [Suspect]
     Indication: RENAL TRANSPLANT
     Dates: start: 20010901
  2. MYCOPHENOLATE MOFETIL [Suspect]
     Indication: RENAL TRANSPLANT
  3. STEROIDS NOS [Suspect]
     Indication: RENAL TRANSPLANT

REACTIONS (21)
  - BACK PAIN [None]
  - BIOPSY SKIN ABNORMAL [None]
  - BLOOD CREATININE INCREASED [None]
  - CSF CELL COUNT INCREASED [None]
  - CSF NEUTROPHIL COUNT INCREASED [None]
  - FUNGAL SKIN INFECTION [None]
  - FUNGUS CSF TEST POSITIVE [None]
  - GENERAL PHYSICAL HEALTH DETERIORATION [None]
  - GRANULOMA [None]
  - INFLAMMATION [None]
  - INTERVERTEBRAL DISC COMPRESSION [None]
  - INTERVERTEBRAL DISCITIS [None]
  - LUNG INFILTRATION [None]
  - OSTEOLYSIS [None]
  - PLEOCYTOSIS [None]
  - PNEUMONIA BACTERIAL [None]
  - SKIN LESION [None]
  - SPINAL COMPRESSION FRACTURE [None]
  - SPONDYLOSIS [None]
  - SWELLING [None]
  - WHITE BLOOD CELL COUNT INCREASED [None]
